FAERS Safety Report 10225123 (Version 1)
Quarter: 2014Q2

REPORT INFORMATION
  Report Type: Spontaneous
  Country: US (occurrence: US)
  Receive Date: 20140609
  Receipt Date: 20140609
  Transmission Date: 20141212
  Serious: Yes (Other)
  Sender: FDA-Public Use
  Company Number: US-BAYER-2014-085322

PATIENT
  Sex: Male

DRUGS (12)
  1. ACETYLSALICYLIC ACID({=100 MG) [Suspect]
     Route: 064
  2. ACETYLSALICYLIC ACID({=100 MG) [Suspect]
     Route: 064
  3. METHYLDOPA [Concomitant]
     Dosage: DAILY DOSE 500 MG
     Route: 048
  4. METHYLDOPA [Concomitant]
     Dosage: DAILY DOSE 500 MG
     Route: 048
  5. FUROSEMIDE [Concomitant]
  6. FUROSEMIDE [Concomitant]
  7. METOPROLOL [Concomitant]
  8. METOPROLOL [Concomitant]
  9. CLOPIDOGREL [Concomitant]
  10. CLOPIDOGREL [Concomitant]
  11. HYDROMORPHONE [Concomitant]
  12. HYDROMORPHONE [Concomitant]

REACTIONS (3)
  - Foetal distress syndrome [None]
  - Premature baby [None]
  - Maternal exposure during pregnancy [None]
